FAERS Safety Report 5318609-X (Version None)
Quarter: 2007Q2

REPORT INFORMATION
  Report Type: 
  Country: None (occurrence: None)
  Receive Date: 20070508
  Receipt Date: 20070427
  Transmission Date: 20071010
  Serious: Yes (Hospitalization)
  Sender: FDA-Public Use
  Company Number: BR-JNJFOC-20070304217

PATIENT
  Age: 22 Year
  Sex: Female
  Weight: 55 kg

DRUGS (5)
  1. ORTHO EVRA [Suspect]
     Indication: OFF LABEL USE
     Route: 062
  2. ORTHO EVRA [Suspect]
     Indication: MENSTRUAL DISORDER
     Route: 062
  3. ORTHO EVRA [Suspect]
     Indication: CONTRACEPTION
     Route: 062
  4. TYLENOL (CAPLET) [Suspect]
     Indication: PAIN
  5. TYLENOL (CAPLET) [Suspect]
     Indication: PYREXIA

REACTIONS (6)
  - ABDOMINAL PAIN [None]
  - BACK PAIN [None]
  - HEADACHE [None]
  - HYPOTENSION [None]
  - METRORRHAGIA [None]
  - PYREXIA [None]
